FAERS Safety Report 19942396 (Version 1)
Quarter: 2021Q4

REPORT INFORMATION
  Report Type: Spontaneous
  Country: US (occurrence: US)
  Receive Date: 20211011
  Receipt Date: 20211011
  Transmission Date: 20220304
  Serious: Yes (Death)
  Sender: FDA-Public Use
  Company Number: None

PATIENT
  Age: 71 Year
  Sex: Female
  Weight: 45.4 kg

DRUGS (1)
  1. AXICABTAGENE CILOLEUCEL [Suspect]
     Active Substance: AXICABTAGENE CILOLEUCEL
     Indication: High-grade B-cell lymphoma
     Dosage: ?          OTHER FREQUENCY:ONCE;
     Route: 042
     Dates: start: 20210922, end: 20211007

REACTIONS (7)
  - Lymphocyte adoptive therapy [None]
  - Cytokine release syndrome [None]
  - Supraventricular tachycardia [None]
  - Neurotoxicity [None]
  - Hypoxia [None]
  - Dyspnoea [None]
  - Metabolic acidosis [None]

NARRATIVE: CASE EVENT DATE: 20211007
